FAERS Safety Report 8204251-X (Version None)
Quarter: 2012Q1

REPORT INFORMATION
  Report Type: 
  Country: None (occurrence: None)
  Receive Date: 20120313
  Receipt Date: 20120308
  Transmission Date: 20120608
  Serious: Yes (Death, Hospitalization)
  Sender: FDA-Public Use
  Company Number: CN-BRISTOL-MYERS SQUIBB COMPANY-16443988

PATIENT
  Age: 54 Year
  Sex: Female

DRUGS (5)
  1. FOLIC ACID [Concomitant]
     Dates: start: 20110327
  2. VITAMIN B-12 [Concomitant]
     Dates: start: 20110327
  3. CISPLATIN [Suspect]
     Indication: NON-SMALL CELL LUNG CANCER
     Route: 042
     Dates: start: 20110602, end: 20110630
  4. DEXAMETHASONE [Concomitant]
     Dates: start: 20110601
  5. ALIMTA [Suspect]
     Indication: NON-SMALL CELL LUNG CANCER
     Route: 042
     Dates: start: 20110602, end: 20110630

REACTIONS (7)
  - NEOPLASM PROGRESSION [None]
  - FUNGAL INFECTION [None]
  - NON-SMALL CELL LUNG CANCER [None]
  - ADRENAL MASS [None]
  - RESPIRATORY FAILURE [None]
  - RADIATION PNEUMONITIS [None]
  - PERFORMANCE STATUS DECREASED [None]
